FAERS Safety Report 12722767 (Version 1)
Quarter: 2016Q3

REPORT INFORMATION
  Report Type: Report from Study
  Country: US (occurrence: US)
  Receive Date: 20160907
  Receipt Date: 20160907
  Transmission Date: 20161109
  Serious: Yes (Death, Other)
  Sender: FDA-Public Use
  Company Number: US-ROCHE-1827247

PATIENT
  Age: 13 Year
  Sex: Male
  Weight: 25.9 kg

DRUGS (2)
  1. BEVACIZUMAB [Suspect]
     Active Substance: BEVACIZUMAB
     Indication: MEDULLOBLASTOMA
     Dosage: ARM B?MOST RECENT DOSE PRIOR TO FIRST EPISODE OF LYMPHOCYTE COUNT DECREASED, FIRST EPISODE OF NEUTRO
     Route: 042
     Dates: start: 20150119
  2. BEVACIZUMAB [Suspect]
     Active Substance: BEVACIZUMAB
     Dosage: ARM B?MOST RECENT DOSE PRIOR TO SECOND EPISODE OF LYMPHOCYTE COUNT DECREASED, SECOND EPISODE OF NEUT
     Route: 042
     Dates: start: 20150330, end: 20150518

REACTIONS (5)
  - Platelet count decreased [Unknown]
  - White blood cell count decreased [Unknown]
  - Lymphocyte count decreased [Unknown]
  - Neutrophil count decreased [Unknown]
  - Death [Fatal]

NARRATIVE: CASE EVENT DATE: 20150726
